FAERS Safety Report 9156185 (Version 1)
Quarter: 2013Q1

REPORT INFORMATION
  Report Type: Report from Study
  Country: US (occurrence: US)
  Receive Date: 20130311
  Receipt Date: 20130311
  Transmission Date: 20140127
  Serious: Yes (Hospitalization, Other)
  Sender: FDA-Public Use
  Company Number: US-ABBOTT-13P-163-1058083-00

PATIENT
  Sex: Female
  Weight: 83.08 kg

DRUGS (8)
  1. HUMIRA [Suspect]
     Indication: RHEUMATOID ARTHRITIS
     Dates: end: 2010
  2. NORVASC [Concomitant]
     Indication: BLOOD PRESSURE
  3. LISINOPRIL [Concomitant]
     Indication: BLOOD PRESSURE
  4. ADVAIR [Concomitant]
     Indication: ASTHMA
  5. PAXIL [Concomitant]
     Indication: DEPRESSION
  6. LIPITOR [Concomitant]
     Indication: BLOOD CHOLESTEROL
  7. ASPIRIN [Concomitant]
     Indication: PRODUCT USED FOR UNKNOWN INDICATION
  8. VITAMIN D [Concomitant]
     Indication: VITAMIN D DEFICIENCY

REACTIONS (4)
  - Myasthenia gravis [Unknown]
  - Abdominal pain [Recovered/Resolved]
  - Diabetes mellitus [Not Recovered/Not Resolved]
  - Rheumatoid arthritis [Not Recovered/Not Resolved]
